FAERS Safety Report 9496594 (Version 2)
Quarter: 2013Q3

REPORT INFORMATION
  Report Type: Spontaneous
  Country: US (occurrence: US)
  Receive Date: 20130904
  Receipt Date: 20130928
  Transmission Date: 20140515
  Serious: Yes (Other)
  Sender: FDA-Public Use
  Company Number: US-BAYER-2013-106710

PATIENT
  Age: 84 Year
  Sex: Female
  Weight: 63.5 kg

DRUGS (11)
  1. XARELTO [Suspect]
     Indication: CEREBROVASCULAR ACCIDENT PROPHYLAXIS
     Dosage: 20 MG, QD
     Route: 048
     Dates: start: 20130708
  2. XARELTO [Suspect]
     Indication: ATRIAL FIBRILLATION
     Route: 048
  3. XARELTO [Suspect]
     Indication: ATRIAL FIBRILLATION
  4. ACETYLSALICYLIC ACID({=100 MG) [Suspect]
     Indication: ANTICOAGULANT THERAPY
     Dosage: 81 MG, BID
     Route: 048
     Dates: start: 2013, end: 20130824
  5. ACETYLSALICYLIC ACID({=100 MG) [Suspect]
     Indication: ANTICOAGULANT THERAPY
     Dosage: 1.81 MG, UNK
     Route: 048
  6. DIGOXIN [Concomitant]
     Indication: ATRIAL FIBRILLATION
     Dosage: .125 MG, UNK
     Route: 048
     Dates: start: 20130723
  7. ATENOLOL [Concomitant]
     Indication: HYPERTENSION
     Dosage: 100 MG, UNK
     Route: 048
     Dates: start: 201307
  8. SIMVASTATIN [Concomitant]
     Indication: ATRIAL FIBRILLATION
     Dosage: .125 MG, QD
     Route: 048
  9. SIMVASTATIN [Concomitant]
     Indication: ATRIAL FIBRILLATION
  10. CENTRUM SILVER [Concomitant]
     Route: 065
  11. CALCIUM CARBONATE W/COLECALCIFEROL [Concomitant]
     Route: 065

REACTIONS (2)
  - Blood urine present [Recovered/Resolved]
  - Weight decreased [Not Recovered/Not Resolved]
